FAERS Safety Report 7537797-8 (Version None)
Quarter: 2011Q2

REPORT INFORMATION
  Report Type: 
  Country: None (occurrence: None)
  Receive Date: 20110609
  Receipt Date: 20110525
  Transmission Date: 20111010
  Serious: No
  Sender: FDA-Public Use
  Company Number: US-B.I. PHARMACEUTICALS,INC./RIDGEFIELD-2011-BP-13955BP

PATIENT
  Sex: Female

DRUGS (8)
  1. PRADAXA [Suspect]
     Indication: ATRIAL FIBRILLATION
     Dosage: 300 MG
     Route: 048
     Dates: start: 20110301
  2. LEVOTHYROXINE SODIUM [Concomitant]
     Indication: HYPOTHYROIDISM
  3. BENAZEPRIL HYDROCHLORIDE [Concomitant]
     Indication: HYPERTENSION
  4. RANITIDINE [Concomitant]
     Indication: DYSPEPSIA
  5. CARISOPRODOL [Concomitant]
     Indication: HYPERTENSION
  6. NIASPAN [Concomitant]
     Indication: BLOOD CHOLESTEROL INCREASED
  7. METOPROLOL SUCCINATE [Concomitant]
     Indication: HYPERTENSION
  8. DIGOXIN [Concomitant]
     Indication: ATRIAL FIBRILLATION

REACTIONS (5)
  - DYSPEPSIA [None]
  - ARTHRALGIA [None]
  - FLUSHING [None]
  - NECK PAIN [None]
  - PRURITUS [None]
